FAERS Safety Report 5704790-7 (Version None)
Quarter: 2008Q2

REPORT INFORMATION
  Report Type: 
  Country: None (occurrence: None)
  Receive Date: 20080414
  Receipt Date: 20080214
  Transmission Date: 20081010
  Serious: Yes (Other)
  Sender: FDA-Public Use
  Company Number: CA-PFIZER INC-2008016753

PATIENT
  Sex: Female
  Weight: 68 kg

DRUGS (5)
  1. CHAMPIX [Suspect]
     Indication: SMOKING CESSATION THERAPY
     Dates: start: 20080122, end: 20080214
  2. LYRICA [Suspect]
     Indication: NEURALGIA
     Dates: start: 20080118, end: 20080220
  3. NORVASC [Concomitant]
     Indication: HYPERTENSION
  4. PERCOCET [Concomitant]
     Indication: PAIN
  5. ACTONEL [Concomitant]
     Indication: OSTEOPOROSIS

REACTIONS (9)
  - ABDOMINAL PAIN [None]
  - DEPRESSION [None]
  - EUPHORIC MOOD [None]
  - FLATULENCE [None]
  - HEADACHE [None]
  - IRRITABILITY [None]
  - NAUSEA [None]
  - TREMOR [None]
  - WEIGHT INCREASED [None]
